FAERS Safety Report 17431965 (Version 1)
Quarter: 2020Q1

REPORT INFORMATION
  Report Type: Report from Study
  Country: GB (occurrence: GB)
  Receive Date: 20200218
  Receipt Date: 20200218
  Transmission Date: 20200409
  Serious: Yes (Life-Threatening)
  Sender: FDA-Public Use
  Company Number: GB-AMGEN-GBRNI2019033810

PATIENT
  Age: 20 Year
  Sex: Female
  Weight: 74.8 kg

DRUGS (40)
  1. TAZOBACTAM [Concomitant]
     Active Substance: TAZOBACTAM
     Indication: NEUTROPENIC SEPSIS
     Dosage: 500 MG, UNK
     Dates: start: 20181103
  2. TINZAPARIN [Concomitant]
     Active Substance: TINZAPARIN
     Dosage: 4500 UNK, UNK
     Dates: start: 20181102, end: 20190124
  3. CIPROFLOXACIN. [Concomitant]
     Active Substance: CIPROFLOXACIN
     Dosage: 750 MG, UNK
     Dates: start: 20181107, end: 20181108
  4. LAMIVUDINE. [Concomitant]
     Active Substance: LAMIVUDINE
     Dosage: 100 MG, UNK
     Dates: start: 20181113, end: 20181207
  5. AZTREONAM. [Concomitant]
     Active Substance: AZTREONAM
     Dosage: 1 G, UNK
     Dates: start: 20181109, end: 20181113
  6. TRIMETHOPRIM. [Concomitant]
     Active Substance: TRIMETHOPRIM
     Dosage: 80 MG, UNK
     Dates: start: 20181108, end: 20190125
  7. AGOMELATINE [Concomitant]
     Active Substance: AGOMELATINE
     Dosage: 25 MG, UNK
     Dates: start: 20181121, end: 20181204
  8. RASBURICASE [Concomitant]
     Active Substance: RASBURICASE
     Dosage: 3 MG, UNK
     Dates: start: 20181108, end: 20181110
  9. POTASSIUM BICARBONATE. [Concomitant]
     Active Substance: POTASSIUM BICARBONATE
     Dosage: 800 MG, UNK
     Dates: start: 20181202, end: 20181204
  10. BLINATUMOMAB [Suspect]
     Active Substance: BLINATUMOMAB
     Indication: ACUTE LYMPHOCYTIC LEUKAEMIA
     Dosage: 28 MICROGRAM, QD
     Route: 042
     Dates: start: 20181109
  11. MUCAINE [Concomitant]
     Active Substance: ALUMINUM HYDROXIDE\DIMETHICONE\MAGNESIUM HYDROXIDE
     Dosage: 10 ML, UNK
     Dates: start: 20181118, end: 20181207
  12. HYDROXOCOBALAMIN [Concomitant]
     Active Substance: HYDROXOCOBALAMIN
     Dosage: 1 MG, UNK
     Dates: start: 20181108, end: 20181113
  13. LINEZOLID. [Concomitant]
     Active Substance: LINEZOLID
     Dosage: 600 MG, UNK
     Dates: start: 20181107, end: 20181108
  14. AMBISOME [Concomitant]
     Active Substance: AMPHOTERICIN B
     Dosage: 50 MG, UNK
     Dates: start: 20181109, end: 20181109
  15. CHLORHEXIDINE [Concomitant]
     Active Substance: CHLORHEXIDINE
     Dosage: 1 UNK, UNK
     Dates: start: 20181108, end: 20181207
  16. FLUCONAZOLE. [Concomitant]
     Active Substance: FLUCONAZOLE
     Dosage: 100 MG, UNK
     Dates: start: 20181118, end: 20181127
  17. DEXAMETHASONE. [Concomitant]
     Active Substance: DEXAMETHASONE
     Dosage: 1 GTT, UNK
     Dates: start: 20181108, end: 20181206
  18. FOLIC ACID. [Concomitant]
     Active Substance: FOLIC ACID
     Dosage: 5 MG, UNK
     Dates: start: 2018, end: 20181107
  19. MOVICOL [Concomitant]
     Active Substance: POLYETHYLENE GLYCOL 3350\POTASSIUM CHLORIDE\SODIUM BICARBONATE\SODIUM CHLORIDE
     Dosage: 2 UNK, UNK
     Dates: start: 20181104, end: 20190122
  20. PIPERACILLIN. [Concomitant]
     Active Substance: PIPERACILLIN SODIUM
     Indication: NEUTROPENIC SEPSIS
     Dosage: 4 G, UNK
     Dates: start: 20181103
  21. ACICLOVIR [Concomitant]
     Active Substance: ACYCLOVIR
     Dosage: 400 MG, UNK
     Dates: start: 20181108, end: 20181207
  22. CODEINE [Concomitant]
     Active Substance: CODEINE
     Dosage: 30 MG, UNK
     Dates: start: 2018, end: 20181106
  23. OMEPRAZOLE. [Concomitant]
     Active Substance: OMEPRAZOLE
     Dosage: 20 MG, UNK
     Dates: start: 20181108, end: 20190111
  24. SULFAMETHOXAZOLE [Concomitant]
     Active Substance: SULFAMETHOXAZOLE
     Dosage: 400 MG, UNK
     Dates: start: 20181108, end: 20190125
  25. TEICOPLANIN [Concomitant]
     Active Substance: TEICOPLANIN
     Dosage: 900 MG, UNK
     Dates: start: 20181108, end: 20181114
  26. COLECALCIFEROL [Concomitant]
     Active Substance: CHOLECALCIFEROL
     Dosage: 40000 UNK, UNK
     Dates: start: 20181102
  27. CYCLIZINE LACTATE [Concomitant]
     Active Substance: CYCLIZINE LACTATE
     Dosage: 50 MG, UNK
     Dates: start: 20181126, end: 20181207
  28. PARACETAMOL [Concomitant]
     Active Substance: ACETAMINOPHEN
     Dosage: 1 G, UNK
     Dates: start: 20181103, end: 20181111
  29. ZOPICLONE [Concomitant]
     Active Substance: ZOPICLONE
     Dosage: 3.75 MG, UNK
     Dates: start: 20181102, end: 20181207
  30. MORPHINE SULFATE. [Concomitant]
     Active Substance: MORPHINE SULFATE
     Dosage: 10-50 MG, UNK
     Dates: start: 20181106
  31. DOCUSATE [Concomitant]
     Active Substance: DOCUSATE
     Dosage: 100 MG, UNK
     Dates: start: 20181103, end: 20190125
  32. SENNOSIDE [Concomitant]
     Active Substance: SENNOSIDES
     Dosage: 15 MG, UNK
     Dates: start: 20181103
  33. ALLOPURINOL. [Concomitant]
     Active Substance: ALLOPURINOL
     Dosage: 300 MG, UNK
     Dates: start: 20181111
  34. CYCLOPENTOLATE. [Concomitant]
     Active Substance: CYCLOPENTOLATE
     Dosage: 1 GTT, UNK
     Dates: start: 20181127, end: 20181129
  35. MEROPENEM. [Concomitant]
     Active Substance: MEROPENEM
     Dosage: 1 G, UNK
     Dates: start: 20181104, end: 20181129
  36. MAGNESIUM OXIDE. [Concomitant]
     Active Substance: MAGNESIUM OXIDE
     Dosage: 400 MG, UNK
     Dates: start: 20181103, end: 20181204
  37. CITALOPRAM [Concomitant]
     Active Substance: CITALOPRAM HYDROBROMIDE
     Dosage: 10 MG, UNK
     Dates: start: 2018, end: 20181109
  38. ITRACONAZOLE. [Concomitant]
     Active Substance: ITRACONAZOLE
     Dosage: 190 MG, UNK
     Dates: start: 20181108, end: 20181109
  39. NORETHISTERONE [Concomitant]
     Active Substance: NORETHINDRONE
     Dosage: 5 MG, UNK
     Dates: start: 20181109
  40. PHOSPHATE SANDOZ [Concomitant]
     Active Substance: SODIUM PHOSPHATE, MONOBASIC, ANHYDROUS
     Dosage: 2 UNK, UNK
     Dates: start: 20181109, end: 20181110

REACTIONS (1)
  - Neutropenic sepsis [Recovered/Resolved]

NARRATIVE: CASE EVENT DATE: 20181129
